FAERS Safety Report 9157665 (Version 1)
Quarter: 2013Q1

REPORT INFORMATION
  Report Type: Other
  Country: IT (occurrence: IT)
  Receive Date: 20130312
  Receipt Date: 20130312
  Transmission Date: 20140127
  Serious: Yes (Hospitalization)
  Sender: FDA-Public Use
  Company Number: IT-NOVEN-13IT006372

PATIENT
  Age: 52 Year
  Sex: Female

DRUGS (3)
  1. PAROXETINE [Suspect]
     Indication: PRODUCT USED FOR UNKNOWN INDICATION
     Dosage: 560 MG, TOTAL (20 MG TABLETS)
     Route: 048
     Dates: start: 20130204, end: 20130204
  2. LAROXYL [Suspect]
     Indication: PRODUCT USED FOR UNKNOWN INDICATION
     Dosage: 1500 MG, TOTAL (10 MG TABLETS)
     Route: 048
     Dates: start: 20130204, end: 20130204
  3. VALDORM [Suspect]
     Indication: PRODUCT USED FOR UNKNOWN INDICATION
     Dosage: 900 MG, TOTAL (30 MG CAPSULES)
     Route: 048
     Dates: start: 20130204, end: 20130204

REACTIONS (3)
  - Suicide attempt [Unknown]
  - Sedation [Unknown]
  - Intentional overdose [Unknown]
